FAERS Safety Report 11995404 (Version 4)
Quarter: 2016Q2

REPORT INFORMATION
  Report Type: Report from Study
  Country: GB (occurrence: GB)
  Receive Date: 20160203
  Receipt Date: 20160421
  Transmission Date: 20160815
  Serious: Yes (Hospitalization)
  Sender: FDA-Public Use
  Company Number: GB-JNJFOC-20160123898

PATIENT
  Age: 49 Year
  Sex: Male

DRUGS (4)
  1. ABIRATERONE [Suspect]
     Active Substance: ABIRATERONE
     Indication: PROSTATE CANCER METASTATIC
     Route: 048
     Dates: start: 20150223, end: 20151005
  2. ZOLADEX [Concomitant]
     Active Substance: GOSERELIN ACETATE
     Indication: PROSTATE CANCER METASTATIC
     Route: 030
     Dates: start: 20150223
  3. PREDNISOLONE. [Concomitant]
     Active Substance: PREDNISOLONE
     Indication: PROSTATE CANCER METASTATIC
     Route: 048
     Dates: start: 20150223, end: 20150722
  4. DEXAMETHASONE. [Concomitant]
     Active Substance: DEXAMETHASONE
     Indication: PROSTATE CANCER METASTATIC
     Route: 048
     Dates: start: 20150723

REACTIONS (2)
  - Gastrointestinal hypomotility [Recovered/Resolved]
  - Urosepsis [Recovered/Resolved]

NARRATIVE: CASE EVENT DATE: 20150720
